FAERS Safety Report 12211741 (Version 2)
Quarter: 2016Q1

REPORT INFORMATION
  Report Type: Spontaneous
  Country: US (occurrence: US)
  Receive Date: 20160325
  Receipt Date: 20160325
  Transmission Date: 20160526
  Serious: No
  Sender: FDA-Public Use
  Company Number: US-BAYER-2016-053375

PATIENT
  Age: 62 Year
  Sex: Male
  Weight: 76.19 kg

DRUGS (5)
  1. LOTRIMIN AF ANTIFUNGAL [Suspect]
     Active Substance: MICONAZOLE NITRATE
     Indication: NAIL DISCOLOURATION
     Dosage: 1 DF, QD
     Route: 061
     Dates: start: 2013
  2. ACIPHEX [Concomitant]
     Active Substance: RABEPRAZOLE SODIUM
  3. LOTRIMIN ULTRA ANTIFUNGAL [Suspect]
     Active Substance: BUTENAFINE HYDROCHLORIDE
     Indication: NAIL DISCOLOURATION
     Dosage: 1 DF, QD
     Route: 061
     Dates: start: 2013
  4. ATORVASTATIN [Concomitant]
     Active Substance: ATORVASTATIN
  5. LISINOPRIL. [Concomitant]
     Active Substance: LISINOPRIL

REACTIONS (4)
  - Therapeutic response unexpected [None]
  - Off label use [None]
  - Product use issue [None]
  - Incorrect drug administration duration [None]
